FAERS Safety Report 6013074-1 (Version None)
Quarter: 2008Q4

REPORT INFORMATION
  Report Type: 
  Country: None (occurrence: None)
  Receive Date: 20081219
  Receipt Date: 20081210
  Transmission Date: 20090506
  Serious: Yes (Other)
  Sender: FDA-Public Use
  Company Number: FR-ELI_LILLY_AND_COMPANY-FR200812003201

PATIENT
  Sex: Female

DRUGS (2)
  1. BYETTA [Suspect]
     Route: 058
  2. INSULIN [Concomitant]

REACTIONS (1)
  - HYPERGLYCAEMIA [None]
